FAERS Safety Report 9184612 (Version 1)
Quarter: 2013Q1

REPORT INFORMATION
  Report Type: Report from Study
  Country: DE (occurrence: DE)
  Receive Date: 20130324
  Receipt Date: 20130324
  Transmission Date: 20140127
  Serious: Yes (Other)
  Sender: FDA-Public Use
  Company Number: DE-GILEAD-2013-0071854

PATIENT
  Sex: 0

DRUGS (2)
  1. TENOFOVIR DISOPROXIL FUMARATE [Suspect]
     Indication: HEPATITIS D
     Dosage: 245 MG, QD
  2. PEGINTERFERON ALFA-2A [Suspect]
     Indication: HEPATITIS D
     Dosage: 180 ?G, Q1WK

REACTIONS (1)
  - Anal ulcer [Unknown]
